FAERS Safety Report 8012937-5 (Version None)
Quarter: 2011Q4

REPORT INFORMATION
  Report Type: 
  Country: None (occurrence: None)
  Receive Date: 20111229
  Receipt Date: 20111223
  Transmission Date: 20120403
  Serious: No
  Sender: FDA-Public Use
  Company Number: FR-ASTELLAS-2011EU006622

PATIENT
  Sex: Male
  Weight: 87 kg

DRUGS (10)
  1. PROGRAF [Suspect]
     Dosage: 8 MG, UNKNOWN/D
     Route: 048
     Dates: start: 20051126, end: 20051205
  2. PROGRAF [Suspect]
     Dosage: 5 MG, UNKNOWN/D
     Route: 048
     Dates: start: 20060705, end: 20100315
  3. PROGRAF [Suspect]
     Dosage: 4 MG, UNKNOWN/D
     Route: 048
     Dates: start: 20100316, end: 20100412
  4. PROGRAF [Suspect]
     Dosage: 7 MG, UNKNOWN/D
     Route: 048
     Dates: start: 20051206, end: 20060503
  5. MYCOPHENOLATE MOFETIL (CELLCEPT) [Concomitant]
     Indication: PROPHYLAXIS AGAINST TRANSPLANT REJECTION
     Dosage: 2 G, UNKNOWN/D
     Route: 048
     Dates: start: 20051102
  6. PROGRAF [Suspect]
     Indication: RENAL TRANSPLANT
     Dosage: 6 MG, UNKNOWN/D
     Route: 048
     Dates: start: 20051101, end: 20051125
  7. PROGRAF [Suspect]
     Dosage: 5 MG, UNKNOWN/D
     Route: 048
     Dates: start: 20100413, end: 20100922
  8. PROGRAF [Suspect]
     Dosage: 6 MG, UNKNOWN/D
     Route: 048
     Dates: start: 20060504, end: 20060704
  9. HYPERIUM [Concomitant]
     Indication: HYPERTENSION
     Dosage: 2 MG, UNKNOWN/D
     Route: 048
     Dates: start: 20051101
  10. PROGRAF [Suspect]
     Dosage: 3 MG, UNKNOWN/D
     Route: 048
     Dates: start: 20100923, end: 20110908

REACTIONS (1)
  - PSYCHOMOTOR HYPERACTIVITY [None]
